FAERS Safety Report 8808483 (Version 3)
Quarter: 2012Q4

REPORT INFORMATION
  Report Type: 
  Country: US (occurrence: US)
  Receive Date: 20120926
  Receipt Date: 20121116
  Transmission Date: 20130627
  Serious: Yes (Life-Threatening, Hospitalization)
  Sender: FDA-Public Use
  Company Number: US-BAYER-2012-098979

PATIENT
  Age: 22 Year
  Sex: Female
  Weight: 65.76 kg

DRUGS (10)
  1. YAZ [Suspect]
     Indication: CONTRACEPTION
     Dosage: UNK
     Dates: start: 2005, end: 20120114
  2. YAZ [Suspect]
     Indication: ACNE
  3. YAZ [Suspect]
     Indication: PREMENSTRUAL SYNDROME
  4. YASMIN [Suspect]
     Indication: CONTRACEPTION
     Dosage: UNK
     Dates: start: 2005, end: 20120114
  5. YASMIN [Suspect]
     Indication: ACNE
  6. YASMIN [Suspect]
     Indication: PREMENSTRUAL SYNDROME
  7. LEXAPRO [Concomitant]
     Dosage: 20 mg, daily
  8. TOPAMAX [Concomitant]
     Dosage: 100 mg, daily
  9. MUSCLE RELAXANTS [Concomitant]
     Indication: PAIN
  10. IBUPROFEN [Concomitant]
     Indication: PAIN

REACTIONS (12)
  - Pulmonary embolism [None]
  - Chest pain [None]
  - Cough [None]
  - Depression [None]
  - Post-traumatic stress disorder [None]
  - Anxiety [None]
  - Fear [None]
  - Pain [None]
  - Injury [None]
  - General physical health deterioration [None]
  - Anhedonia [None]
  - Emotional distress [None]
